FAERS Safety Report 24149447 (Version 1)
Quarter: 2024Q3

REPORT INFORMATION
  Report Type: Spontaneous
  Country: US (occurrence: US)
  Receive Date: 20240730
  Receipt Date: 20240730
  Transmission Date: 20241017
  Serious: No
  Sender: BOEHRINGER INGELHEIM
  Company Number: US-BoehringerIngelheim-2024-BI-042090

PATIENT
  Age: 85 Year
  Sex: Male

DRUGS (3)
  1. JARDIANCE [Suspect]
     Active Substance: EMPAGLIFLOZIN
     Indication: Type 2 diabetes mellitus
     Dosage: DAILY DOSE: 10 MILLIGRAM(S)
  2. JARDIANCE [Suspect]
     Active Substance: EMPAGLIFLOZIN
     Dosage: DAILY DOSE: 25 MILLIGRAM(S)
     Dates: start: 2023
  3. TRADJENTA [Suspect]
     Active Substance: LINAGLIPTIN
     Indication: Type 2 diabetes mellitus
     Dosage: DAILY DOSE: 10 MILLIGRAM(S)

REACTIONS (3)
  - Pruritus [Recovered/Resolved]
  - Groin pain [Recovered/Resolved]
  - Pain [Recovered/Resolved]
